FAERS Safety Report 7867109-1 (Version None)
Quarter: 2011Q4

REPORT INFORMATION
  Report Type: 
  Country: None (occurrence: None)
  Receive Date: 20111028
  Receipt Date: 20111022
  Transmission Date: 20120403
  Serious: Yes (Hospitalization)
  Sender: FDA-Public Use
  Company Number: US-BRISTOL-MYERS SQUIBB COMPANY-16188823

PATIENT
  Age: 71 Year
  Sex: Male
  Weight: 92 kg

DRUGS (6)
  1. ATIVAN [Concomitant]
     Indication: ANXIETY
     Route: 048
  2. IPILIMUMAB [Suspect]
     Indication: MALIGNANT MELANOMA
     Route: 042
     Dates: start: 20110802, end: 20111004
  3. ATIVAN [Concomitant]
     Indication: INSOMNIA
     Route: 048
  4. CLOBETASOL PROPIONATE [Concomitant]
     Dosage: 1 DF = 0.05% LOTION 1 APPLICATION TO BID
  5. OMEPRAZOLE [Concomitant]
     Route: 048
  6. LEUKINE [Suspect]
     Indication: MALIGNANT MELANOMA
     Route: 058
     Dates: start: 20110802, end: 20111018

REACTIONS (3)
  - TRANSAMINASES INCREASED [None]
  - SINUS TACHYCARDIA [None]
  - ABDOMINAL PAIN [None]
